FAERS Safety Report 5016369-3 (Version None)
Quarter: 2006Q2

REPORT INFORMATION
  Report Type: 
  Country: None (occurrence: None)
  Receive Date: 20060419
  Receipt Date: 20060117
  Transmission Date: 20061013
  Serious: Yes (Other)
  Sender: FDA-Public Use
  Company Number: US200601002689

PATIENT
  Age: 57 Year
  Sex: Female

DRUGS (3)
  1. ALIMTA [Suspect]
     Indication: CERVIX CARCINOMA
     Dosage: 500 MG/M2
     Dates: start: 20051006, end: 20051026
  2. FOLIC ACID [Concomitant]
  3. CYANOCOBALAMIN [Concomitant]

REACTIONS (1)
  - PLATELET COUNT DECREASED [None]
